FAERS Safety Report 8261997-5 (Version None)
Quarter: 2012Q2

REPORT INFORMATION
  Report Type: 
  Country: None (occurrence: None)
  Receive Date: 20120402
  Receipt Date: 20120323
  Transmission Date: 20120825
  Serious: Yes (Hospitalization)
  Sender: FDA-Public Use
  Company Number: 2012SP016424

PATIENT
  Age: 43 Year
  Sex: Male

DRUGS (3)
  1. TESTOVIRON DEPOT (TESTOSTERONE HEXAHYDROBENZOATE) [Suspect]
     Indication: PRODUCT USED FOR UNKNOWN INDICATION
     Dosage: 250 MG;;IV
     Route: 042
     Dates: end: 20111004
  2. DECA-DURABOLIN [Suspect]
     Indication: PRODUCT USED FOR UNKNOWN INDICATION
     Dosage: 50 MG,, IV
     Route: 042
     Dates: end: 20111004
  3. ARIMIDEX [Suspect]
     Indication: PRODUCT USED FOR UNKNOWN INDICATION
     Dates: end: 20111004

REACTIONS (7)
  - DRUG ABUSE [None]
  - PULMONARY OEDEMA [None]
  - ATRIAL FIBRILLATION [None]
  - RENAL FAILURE [None]
  - SHOCK [None]
  - DYSPNOEA AT REST [None]
  - FAT EMBOLISM [None]
